FAERS Safety Report 4993350-1 (Version None)
Quarter: 2006Q2

REPORT INFORMATION
  Report Type: 
  Country: None (occurrence: None)
  Receive Date: 20060505
  Receipt Date: 20060424
  Transmission Date: 20061013
  Serious: Yes (Hospitalization)
  Sender: FDA-Public Use
  Company Number: PHEH2006US05372

PATIENT
  Age: 35 Year
  Sex: Female

DRUGS (1)
  1. EXJADE [Suspect]
     Indication: BLOOD IRON INCREASED
     Dosage: 1500 MG, QD
     Dates: start: 20060329, end: 20060419

REACTIONS (5)
  - ANXIETY [None]
  - DIARRHOEA [None]
  - FEELING ABNORMAL [None]
  - NERVOUSNESS [None]
  - SICKLE CELL ANAEMIA WITH CRISIS [None]
